FAERS Safety Report 7010208-7 (Version None)
Quarter: 2010Q3

REPORT INFORMATION
  Report Type: 
  Country: None (occurrence: None)
  Receive Date: 20100923
  Receipt Date: 20100709
  Transmission Date: 20110219
  Serious: No
  Sender: FDA-Public Use
  Company Number: US-BAUSCH-2010BL003718

PATIENT
  Age: 27 Year
  Sex: Male

DRUGS (1)
  1. ERYTHROCIN 1% [Suspect]
     Indication: HORDEOLUM
     Route: 047
     Dates: start: 20100708, end: 20100708

REACTIONS (2)
  - EYE IRRITATION [None]
  - VISION BLURRED [None]
